FAERS Safety Report 5124933-6 (Version None)
Quarter: 2006Q4

REPORT INFORMATION
  Report Type: 
  Country: None (occurrence: None)
  Receive Date: 20061006
  Receipt Date: 20060925
  Transmission Date: 20070319
  Serious: Yes (Hospitalization)
  Sender: FDA-Public Use
  Company Number: CERZ-11277

PATIENT
  Age: 20 Year
  Sex: Female
  Weight: 33 kg

DRUGS (4)
  1. CEREZYME [Suspect]
     Indication: GAUCHER'S DISEASE
     Dosage: 90 U/KG Q2WKS; IV
     Route: 042
     Dates: start: 20051015
  2. FOLIC ACID [Concomitant]
  3. ALENDRONATE SODIUM [Concomitant]
  4. ACETAMINOPHEN [Concomitant]

REACTIONS (4)
  - HEADACHE [None]
  - HYPERTENSION [None]
  - INFUSION RELATED REACTION [None]
  - VOMITING [None]
